FAERS Safety Report 16023877 (Version 2)
Quarter: 2019Q3

REPORT INFORMATION
  Report Type: Report from Study
  Country: US (occurrence: US)
  Receive Date: 20190301
  Receipt Date: 20190724
  Transmission Date: 20191004
  Serious: Yes (Other)
  Sender: FDA-Public Use
  Company Number: PHEH2019US008277

PATIENT
  Sex: Male

DRUGS (2)
  1. XANAX [Concomitant]
     Active Substance: ALPRAZOLAM
     Indication: PRODUCT USED FOR UNKNOWN INDICATION
     Dosage: UNK
     Route: 065
  2. COSENTYX [Suspect]
     Active Substance: SECUKINUMAB
     Indication: PRODUCT USED FOR UNKNOWN INDICATION
     Dosage: 300 MG, QMO
     Route: 065

REACTIONS (10)
  - Blood pressure increased [Recovering/Resolving]
  - Chest pain [Unknown]
  - Angina pectoris [Unknown]
  - Erythema [Unknown]
  - Dyspnoea [Unknown]
  - Anxiety [Unknown]
  - Product storage error [Unknown]
  - Headache [Unknown]
  - Chest discomfort [Unknown]
  - Dyspepsia [Unknown]
